FAERS Safety Report 21556821 (Version 10)
Quarter: 2023Q2

REPORT INFORMATION
  Report Type: Report from Study
  Country: TH (occurrence: None)
  Receive Date: 20221104
  Receipt Date: 20230628
  Transmission Date: 20230722
  Serious: Yes (Hospitalization)
  Sender: FDA-Public Use
  Company Number: TH-Eisai Medical Research-EC-2022-126443

PATIENT
  Age: 86 Year
  Sex: Male
  Weight: 58 kg

DRUGS (27)
  1. LENVATINIB [Suspect]
     Active Substance: LENVATINIB
     Indication: Clear cell renal cell carcinoma
     Dosage: STARTING DOSE 20 MG (FLUCTUATED DOSAGE)
     Route: 048
     Dates: start: 20220801, end: 20220914
  2. QUAVONLIMAB [Suspect]
     Active Substance: QUAVONLIMAB
     Indication: Clear cell renal cell carcinoma
     Dosage: MK-1308 25 MG + PEMBROLIZUMAB(MK-2475) 400 MG
     Route: 042
     Dates: start: 20220801, end: 20220801
  3. PEMBROLIZUMAB [Suspect]
     Active Substance: PEMBROLIZUMAB
     Dosage: MK-1308 25 MG + PEMBROLIZUMAB(MK-2475) 400 MG
     Route: 042
     Dates: start: 20221110
  4. ROSUVASTATIN [Concomitant]
     Active Substance: ROSUVASTATIN
     Dates: start: 201301
  5. SPIRIVA [Concomitant]
     Active Substance: TIOTROPIUM BROMIDE MONOHYDRATE
     Dates: start: 20160930
  6. ALFUZOSIN [Concomitant]
     Active Substance: ALFUZOSIN
     Dates: start: 20200109
  7. BETAMETHASONE VALERATE\FUSIDIC ACID [Concomitant]
     Active Substance: BETAMETHASONE VALERATE\FUSIDIC ACID
     Dates: start: 20220614
  8. LORATADINE [Concomitant]
     Active Substance: LORATADINE
     Dates: start: 20220801
  9. TRIAMCINOLONE [Concomitant]
     Active Substance: TRIAMCINOLONE
     Dates: start: 20220801
  10. LOPERAMIDE [Concomitant]
     Active Substance: LOPERAMIDE
     Dates: start: 20220801
  11. UREA [Concomitant]
     Active Substance: UREA
     Dates: start: 20220801
  12. METOCLOPRAMIDE [Concomitant]
     Active Substance: METOCLOPRAMIDE
     Dates: start: 20220801
  13. MOMETASONE FUROATE [Concomitant]
     Active Substance: MOMETASONE FUROATE
     Dates: start: 20220802
  14. FOLIC ACID [Concomitant]
     Active Substance: FOLIC ACID
     Dates: start: 20220803
  15. VITAMIN D NOS [Concomitant]
     Active Substance: VITAMIN D NOS
     Dates: start: 20220803, end: 20221206
  16. CYANOCOBALAMIN;PYRIDOXINE;THIAMINE [Concomitant]
     Dates: start: 20190612, end: 20221206
  17. DOMPERIDONE [Concomitant]
     Active Substance: DOMPERIDONE
     Dates: start: 20220815
  18. CLINDAMYCIN [Concomitant]
     Active Substance: CLINDAMYCIN
     Route: 061
     Dates: start: 20220815
  19. FERROUS FUMARATE [Concomitant]
     Active Substance: FERROUS FUMARATE
     Dates: start: 20220825, end: 20230407
  20. ACETYLCYSTEINE [Concomitant]
     Active Substance: ACETYLCYSTEINE
     Dates: start: 20220915
  21. AMLODIPINE [Concomitant]
     Active Substance: AMLODIPINE BESYLATE
     Dates: start: 20220919, end: 20221102
  22. WARFARIN [Concomitant]
     Active Substance: WARFARIN
     Dates: start: 20220925
  23. PREDNISOLONE [Concomitant]
     Active Substance: PREDNISOLONE
     Dates: start: 20220926, end: 20221017
  24. OMEPRAZOLE [Concomitant]
     Active Substance: OMEPRAZOLE
     Dates: start: 20221006
  25. SENOKOT [Concomitant]
     Active Substance: SENNOSIDES
     Dates: start: 20220825, end: 20221027
  26. HYALURONATE SODIUM [Concomitant]
     Active Substance: HYALURONATE SODIUM
     Dates: start: 20220712
  27. DORZOLAMIDE HYDROCHLORIDE AND TIMOLOL MALEATE [Concomitant]
     Active Substance: DORZOLAMIDE HYDROCHLORIDE\TIMOLOL MALEATE
     Dates: start: 20220712, end: 20230417

REACTIONS (1)
  - Atrioventricular block complete [Recovered/Resolved]

NARRATIVE: CASE EVENT DATE: 20221018
